FAERS Safety Report 21965555 (Version 1)
Quarter: 2023Q1

REPORT INFORMATION
  Report Type: Spontaneous
  Country: BR (occurrence: None)
  Receive Date: 20230208
  Receipt Date: 20230208
  Transmission Date: 20230417
  Serious: Yes (Hospitalization)
  Sender: FDA-Public Use
  Company Number: BR-ROCHE-3278603

PATIENT
  Sex: Male
  Weight: 90 kg

DRUGS (5)
  1. RIVOTRIL [Suspect]
     Active Substance: CLONAZEPAM
     Indication: Depression
     Dosage: 1 DOSAGE FORM IN1 DAY , AT NIGHT STRENGTH 2MG
     Route: 048
     Dates: start: 1993
  2. RIVOTRIL [Suspect]
     Active Substance: CLONAZEPAM
     Indication: Insomnia
     Dosage: 2 DOSAGE FORM IN 1 DAY , AT NIGHT STRENGTH 2MG
     Route: 048
     Dates: start: 202212
  3. RIVOTRIL [Suspect]
     Active Substance: CLONAZEPAM
     Dosage: 20 DROP IN 1 DAY , AT NIGHT STRENGTH: 2.5 MG/ML
     Route: 048
     Dates: start: 202301
  4. PHENYTOIN [Concomitant]
     Active Substance: PHENYTOIN
     Indication: Cerebrovascular disorder
     Dosage: 1 DOSAGE FORM IN 1 DAY // 1 DOSAGE FORM, ONGOING
     Route: 048
     Dates: start: 2022
  5. AMLODIPINE [Concomitant]
     Active Substance: AMLODIPINE BESYLATE
     Indication: Hypertension
     Dosage: 2 DOSAGE FORM IN 1 DAY // 2 DOSAGE FORM? AT LUNCH TIME, ONGOING
     Route: 048
     Dates: start: 2022

REACTIONS (9)
  - Pituitary tumour [Recovered/Resolved]
  - Blindness [Recovered/Resolved]
  - Thyroid hormones decreased [Not Recovered/Not Resolved]
  - Agitation [Not Recovered/Not Resolved]
  - Abnormal dreams [Not Recovered/Not Resolved]
  - Sluggishness [Recovered/Resolved]
  - Depressed mood [Not Recovered/Not Resolved]
  - Incorrect dose administered [Unknown]
  - Off label use [Unknown]

NARRATIVE: CASE EVENT DATE: 19930101
